FAERS Safety Report 9412618 (Version 1)
Quarter: 2013Q3

REPORT INFORMATION
  Report Type: Spontaneous
  Country: US (occurrence: US)
  Receive Date: 20130722
  Receipt Date: 20130722
  Transmission Date: 20140515
  Serious: No
  Sender: FDA-Public Use
  Company Number: US-MYLANLABS-2013S1011065

PATIENT
  Age: 56 Year
  Sex: Female

DRUGS (5)
  1. PAROXETINE HYDROCHLORIDE [Suspect]
     Indication: DEPRESSION
     Route: 048
     Dates: start: 201301
  2. PAROXETINE HYDROCHLORIDE [Suspect]
     Indication: DEPRESSION
     Route: 048
     Dates: start: 201302
  3. ZYPREXA [Concomitant]
     Indication: ANXIETY
     Route: 048
  4. ATORVASTATIN [Concomitant]
     Indication: BLOOD CHOLESTEROL INCREASED
     Route: 048
  5. OXCARBAZEPINE [Concomitant]
     Indication: EPILEPSY
     Route: 048

REACTIONS (2)
  - Sinusitis [Recovering/Resolving]
  - Bronchitis [Not Recovered/Not Resolved]
